FAERS Safety Report 10475124 (Version 2)
Quarter: 2014Q4

REPORT INFORMATION
  Report Type: Spontaneous
  Country: US (occurrence: None)
  Receive Date: 20140922
  Receipt Date: 20141020
  Transmission Date: 20150528
  Serious: Yes (Other)
  Sender: FDA-Public Use
  Company Number: 1205-262

PATIENT
  Age: 79 Year
  Sex: Female

DRUGS (1)
  1. EYLEA [Suspect]
     Active Substance: AFLIBERCEPT
     Indication: AGE-RELATED MACULAR DEGENERATION
     Dosage: 2MG, OPTHLAMIC
     Route: 047
     Dates: start: 20120511, end: 20120511

REACTIONS (5)
  - Staphylococcal infection [None]
  - Visual acuity reduced [None]
  - Vitrectomy [None]
  - Endophthalmitis [None]
  - Hypopyon [None]

NARRATIVE: CASE EVENT DATE: 20120517
